FAERS Safety Report 23729392 (Version 1)
Quarter: 2024Q2

REPORT INFORMATION
  Report Type: Spontaneous
  Country: US (occurrence: US)
  Receive Date: 20240410
  Receipt Date: 20240410
  Transmission Date: 20240716
  Serious: No
  Sender: FDA-Public Use
  Company Number: US-AMGEN-USASP2024069086

PATIENT
  Age: 43 Year
  Sex: Female

DRUGS (1)
  1. AIMOVIG [Suspect]
     Active Substance: ERENUMAB-AOOE
     Indication: Migraine
     Dosage: 140 MILLIGRAM, QMO
     Route: 058

REACTIONS (7)
  - Vomiting [Not Recovered/Not Resolved]
  - Agitation [Not Recovered/Not Resolved]
  - Bedridden [Not Recovered/Not Resolved]
  - Device difficult to use [Unknown]
  - Incorrect disposal of product [Unknown]
  - Drug dose omission by device [Unknown]
  - Migraine [Not Recovered/Not Resolved]

NARRATIVE: CASE EVENT DATE: 20240330
